FAERS Safety Report 23810909 (Version 2)
Quarter: 2024Q2

REPORT INFORMATION
  Report Type: Spontaneous
  Country: US (occurrence: US)
  Receive Date: 20240502
  Receipt Date: 20240619
  Transmission Date: 20240716
  Serious: No
  Sender: FDA-Public Use
  Company Number: US-KYOWAKIRIN-2024KK010422

PATIENT

DRUGS (1)
  1. NOURIANZ [Suspect]
     Active Substance: ISTRADEFYLLINE
     Indication: Parkinson^s disease
     Dosage: 20 MG, QD
     Route: 048
     Dates: start: 20240402, end: 2024

REACTIONS (2)
  - Drug ineffective [Not Recovered/Not Resolved]
  - Product dispensing issue [Recovered/Resolved]

NARRATIVE: CASE EVENT DATE: 20240402
